FAERS Safety Report 5017371-8 (Version None)
Quarter: 2006Q2

REPORT INFORMATION
  Report Type: 
  Country: None (occurrence: None)
  Receive Date: 20060601
  Receipt Date: 20060601
  Transmission Date: 20061013
  Serious: Yes (Other)
  Sender: FDA-Public Use
  Company Number: None

PATIENT
  Sex: Female
  Weight: 67.1324 kg

DRUGS (1)
  1. DILTIAZEM CD [Suspect]
     Indication: HYPERTENSION
     Dosage: 240 QD PO
     Route: 048
     Dates: start: 20010325

REACTIONS (1)
  - HYPERTENSION [None]
